FAERS Safety Report 14057768 (Version 1)
Quarter: 2017Q4

REPORT INFORMATION
  Report Type: Spontaneous
  Country: EG (occurrence: EG)
  Receive Date: 20171006
  Receipt Date: 20171006
  Transmission Date: 20180321
  Serious: Yes (Hospitalization, Other)
  Sender: FDA-Public Use
  Company Number: EG-BRISTOL-MYERS SQUIBB COMPANY-BMS-2017-067411

PATIENT
  Age: 71 Year
  Sex: Female
  Weight: 86 kg

DRUGS (1)
  1. ORENCIA [Suspect]
     Active Substance: ABATACEPT
     Indication: RHEUMATOID ARTHRITIS
     Dosage: Q4WK(3 VIAL 250 MG/DOSE)
     Route: 042
     Dates: start: 20170515

REACTIONS (8)
  - Hypersensitivity [Unknown]
  - Chills [Unknown]
  - Hospitalisation [Unknown]
  - Dehydration [Unknown]
  - Nausea [Unknown]
  - Feeling cold [Unknown]
  - Rash [Unknown]
  - Renal failure [Unknown]
